FAERS Safety Report 5361307-7 (Version None)
Quarter: 2007Q2

REPORT INFORMATION
  Report Type: 
  Country: None (occurrence: None)
  Receive Date: 20070612
  Receipt Date: 20070608
  Transmission Date: 20071010
  Serious: Yes (Death)
  Sender: FDA-Public Use
  Company Number: E2020-01332-SPO-GR

PATIENT
  Age: 73 Year
  Sex: Male
  Weight: 75 kg

DRUGS (9)
  1. ARICEPT [Suspect]
     Dosage: 10 MG, 1 IN 1 D, ORAL
     Route: 048
     Dates: start: 20070507
  2. CUBICIN [Suspect]
     Dosage: 350 MG, 1 IN 1 D, INTRAVENOUS (NOT OTHERWISE SPECIFIED)
     Route: 042
     Dates: start: 20070511
  3. TAZOCIN (PIP/TAZO) [Concomitant]
  4. HUMULIN (NOVOLON 20/80) [Concomitant]
  5. PRIMPERAN TAB [Concomitant]
  6. ENOXAPARIN SODIUM [Concomitant]
  7. ULTRA-LEVURE (SACCHAROMYCES BOULARDII) [Concomitant]
  8. CITALOPRAM HYDROBROMIDE [Concomitant]
  9. ALFURAL (ALFUZOSIN HYDROCHLORIDE) [Concomitant]

REACTIONS (4)
  - CARDIOPULMONARY FAILURE [None]
  - DISEASE PROGRESSION [None]
  - GENERAL PHYSICAL HEALTH DETERIORATION [None]
  - NODAL RHYTHM [None]
